FAERS Safety Report 5190999-0 (Version None)
Quarter: 2006Q4

REPORT INFORMATION
  Report Type: 
  Country: None (occurrence: None)
  Receive Date: 20061225
  Receipt Date: 20060822
  Transmission Date: 20070319
  Serious: Yes (Other)
  Sender: FDA-Public Use
  Company Number: US-BAYER-200615234BWH

PATIENT
  Age: 29 Year
  Sex: Female

DRUGS (2)
  1. AVELOX [Suspect]
     Indication: SINUSITIS
     Route: 048
     Dates: start: 20060801, end: 20060801
  2. ASTELIN [Concomitant]
     Route: 045

REACTIONS (2)
  - ABORTION SPONTANEOUS [None]
  - DRUG EXPOSURE DURING PREGNANCY [None]
